FAERS Safety Report 12934204 (Version 1)
Quarter: 2016Q4

REPORT INFORMATION
  Report Type: Report from Study
  Country: US (occurrence: US)
  Receive Date: 20161111
  Receipt Date: 20161111
  Transmission Date: 20170207
  Serious: Yes (Hospitalization)
  Sender: FDA-Public Use
  Company Number: PHHY2016US154344

PATIENT
  Age: 41 Year
  Sex: Female
  Weight: 79.38 kg

DRUGS (1)
  1. GILENYA [Suspect]
     Active Substance: FINGOLIMOD HYDROCHLORIDE
     Indication: MULTIPLE SCLEROSIS
     Dosage: 0.5 MG, QD
     Route: 048
     Dates: start: 20151209

REACTIONS (12)
  - Monocyte count decreased [Unknown]
  - White blood cell count increased [Recovered/Resolved]
  - Red blood cells urine [Unknown]
  - Neutrophil count increased [Unknown]
  - Blood alkaline phosphatase increased [Unknown]
  - Urine abnormality [Unknown]
  - Low density lipoprotein increased [Unknown]
  - Migraine [Recovered/Resolved with Sequelae]
  - High density lipoprotein decreased [Unknown]
  - Urinary sediment present [Unknown]
  - Lymphocyte count decreased [Unknown]
  - Bacterial test positive [Unknown]

NARRATIVE: CASE EVENT DATE: 20161013
